FAERS Safety Report 9458111 (Version 1)
Quarter: 2013Q3

REPORT INFORMATION
  Report Type: Report from Study
  Country: IE (occurrence: IE)
  Receive Date: 20130814
  Receipt Date: 20130814
  Transmission Date: 20140515
  Serious: Yes (Other)
  Sender: FDA-Public Use
  Company Number: IE-INCYTE CORPORATION-2013IN001803

PATIENT
  Sex: Male

DRUGS (2)
  1. INC424 [Suspect]
     Dosage: 20 MG, BID
     Dates: start: 20121125
  2. INC424 [Suspect]
     Dosage: UNKNOWN
     Route: 065

REACTIONS (5)
  - Basal cell carcinoma [Unknown]
  - Gout [Unknown]
  - Hypertension [Unknown]
  - Thrombocytopenia [Unknown]
  - Anaemia [Unknown]
